FAERS Safety Report 7360273-2 (Version None)
Quarter: 2011Q1

REPORT INFORMATION
  Report Type: 
  Country: None (occurrence: None)
  Receive Date: 20110318
  Receipt Date: 20110307
  Transmission Date: 20110831
  Serious: Yes (Other)
  Sender: FDA-Public Use
  Company Number: US-CELGENEUS-163-21880-11030967

PATIENT
  Sex: Male
  Weight: 93.07 kg

DRUGS (8)
  1. REVLIMID [Suspect]
     Dosage: 10 MILLIGRAM
     Route: 048
     Dates: start: 20101002
  2. ZANTAC [Concomitant]
     Dosage: 150 MILLIGRAM
     Route: 048
  3. LEVITRA [Concomitant]
     Dosage: 10 MILLIGRAM
     Route: 048
  4. CLARITIN [Concomitant]
     Dosage: 10 MILLIGRAM
     Route: 048
  5. LISINOPRIL [Concomitant]
     Dosage: 20 MILLIGRAM
     Route: 048
  6. REVLIMID [Suspect]
     Indication: MULTIPLE MYELOMA
     Dosage: 25 MILLIGRAM
     Route: 048
     Dates: start: 20100501, end: 20100901
  7. ASPIRIN [Concomitant]
     Dosage: 162.5 MILLIGRAM
     Route: 048
  8. MOTRIN [Concomitant]
     Dosage: 800 MILLIGRAM
     Route: 048

REACTIONS (2)
  - BLOOD URINE PRESENT [None]
  - MOUTH HAEMORRHAGE [None]
